FAERS Safety Report 15369372 (Version 1)
Quarter: 2018Q3

REPORT INFORMATION
  Report Type: Spontaneous
  Country: US (occurrence: US)
  Receive Date: 20180911
  Receipt Date: 20180911
  Transmission Date: 20181010
  Serious: No
  Sender: FDA-Public Use
  Company Number: US-GLENMARK PHARMACEUTICALS-2018GMK036402

PATIENT

DRUGS (1)
  1. MUPIROCIN. [Suspect]
     Active Substance: MUPIROCIN
     Indication: STAPHYLOCOCCAL SKIN INFECTION
     Dosage: UNK
     Route: 061
     Dates: start: 20180628

REACTIONS (5)
  - Application site erythema [Unknown]
  - Application site pain [Unknown]
  - Product quality issue [Unknown]
  - Nail disorder [Unknown]
  - Application site irritation [Unknown]

NARRATIVE: CASE EVENT DATE: 201806
